FAERS Safety Report 17273947 (Version 1)
Quarter: 2020Q1

REPORT INFORMATION
  Report Type: Spontaneous
  Country: US (occurrence: US)
  Receive Date: 20200115
  Receipt Date: 20200115
  Transmission Date: 20200409
  Serious: Yes (Disabling, Other)
  Sender: FDA-Public Use
  Company Number: None

PATIENT
  Age: 21 Year
  Sex: Female
  Weight: 99.79 kg

DRUGS (1)
  1. PARAGARD T 380A [Suspect]
     Active Substance: COPPER

REACTIONS (11)
  - Complication associated with device [None]
  - Neck pain [None]
  - Menorrhagia [None]
  - Agitation [None]
  - Thinking abnormal [None]
  - Dysmenorrhoea [None]
  - Dyspareunia [None]
  - Feeling abnormal [None]
  - Dizziness [None]
  - Weight increased [None]
  - Uterine pain [None]

NARRATIVE: CASE EVENT DATE: 20131118
